FAERS Safety Report 19055656 (Version 1)
Quarter: 2021Q1

REPORT INFORMATION
  Report Type: Spontaneous
  Country: US (occurrence: US)
  Receive Date: 20210324
  Receipt Date: 20210324
  Transmission Date: 20210420
  Serious: Yes (Hospitalization)
  Sender: FDA-Public Use
  Company Number: None

PATIENT
  Age: 50 Year
  Sex: Female

DRUGS (4)
  1. DAILY MULTIVITAMIN. [Concomitant]
  2. LEVOTHYROXINE. [Concomitant]
     Active Substance: LEVOTHYROXINE
  3. VAGISIL ANTI ITCH MAXIMUM STRENGTH [Suspect]
     Active Substance: BENZOCAINE\RESORCINOL
     Indication: PRODUCT USED FOR UNKNOWN INDICATION
     Dosage: ?          OTHER FREQUENCY:5/DAY;OTHER ROUTE:PERINEAL REGION?
  4. LIOTHYRONINE [Concomitant]
     Active Substance: LIOTHYRONINE

REACTIONS (3)
  - Dyspnoea [None]
  - Methaemoglobinaemia [None]
  - Skin discolouration [None]
